FAERS Safety Report 8811949 (Version 1)
Quarter: 2012Q4

REPORT INFORMATION
  Report Type: 
  Country: US (occurrence: US)
  Receive Date: 20120927
  Receipt Date: 20120927
  Transmission Date: 20130627
  Serious: No
  Sender: FDA-Public Use
  Company Number: US-B.I. PHARMACEUTICALS,INC./RIDGEFIELD-2012-BP-23439BP

PATIENT
  Age: 55 Year
  Sex: Female
  Weight: 45 kg

DRUGS (20)
  1. SPIRIVA [Suspect]
     Indication: BRONCHITIS CHRONIC
     Dosage: 18 mcg
     Route: 055
     Dates: start: 2008
  2. SPIRIVA [Suspect]
     Dosage: 18 mcg
     Route: 048
     Dates: start: 20120925, end: 20120925
  3. NASONEX [Concomitant]
     Indication: MULTIPLE ALLERGIES
     Route: 045
  4. NEXIUM [Concomitant]
     Indication: GASTROOESOPHAGEAL REFLUX DISEASE
     Dosage: 80 mg
     Route: 048
  5. LYRICA [Concomitant]
     Indication: NEURALGIA
     Dosage: 300 mg
     Route: 048
  6. REMICADE [Concomitant]
     Indication: ARTHRITIS
     Route: 042
  7. PROAIR [Concomitant]
     Indication: BRONCHITIS
     Route: 055
  8. PROAIR [Concomitant]
     Indication: CHRONIC OBSTRUCTIVE PULMONARY DISEASE
  9. PANATOL EYE DROPS [Concomitant]
     Indication: MULTIPLE ALLERGIES
  10. CADUET [Concomitant]
     Indication: CORONARY ARTERY DISEASE
     Route: 048
  11. CADUET [Concomitant]
     Indication: HYPERTENSION
  12. ADVAIR [Concomitant]
     Indication: BRONCHITIS
     Route: 055
  13. ADVAIR [Concomitant]
     Indication: CHRONIC OBSTRUCTIVE PULMONARY DISEASE
  14. GENTEAL  EYE DROPS [Concomitant]
     Indication: DRY EYE
  15. ASACOL [Concomitant]
     Indication: GASTROOESOPHAGEAL REFLUX DISEASE
     Dosage: 1600 mg
     Route: 048
  16. COREG [Concomitant]
     Indication: CARDIAC DISORDER
     Dosage: 40 mg
     Route: 048
  17. FLEXERIL [Concomitant]
     Indication: MUSCLE SPASMS
     Dosage: 10 mg
     Route: 048
  18. OXYCODONE [Concomitant]
     Indication: OSTEOPOROSIS
     Route: 048
  19. OXYCODONE [Concomitant]
     Indication: RHEUMATOID ARTHRITIS
  20. OXYCODONE [Concomitant]
     Indication: OSTEOPENIA

REACTIONS (1)
  - Incorrect route of drug administration [Recovered/Resolved]
